FAERS Safety Report 6838909-1 (Version None)
Quarter: 2010Q3

REPORT INFORMATION
  Report Type: 
  Country: None (occurrence: None)
  Receive Date: 20100713
  Receipt Date: 20070813
  Transmission Date: 20110219
  Serious: No
  Sender: FDA-Public Use
  Company Number: US-PFIZER INC-2007046937

PATIENT
  Sex: Female
  Weight: 50 kg

DRUGS (6)
  1. CHANTIX [Suspect]
     Indication: SMOKING CESSATION THERAPY
     Route: 048
     Dates: start: 20070602
  2. LEVAQUIN [Suspect]
     Indication: BRONCHITIS CHRONIC
  3. LEVAQUIN [Suspect]
     Indication: NICOTINE DEPENDENCE
  4. PAXIL CR [Concomitant]
  5. ATENOLOL [Concomitant]
     Indication: HYPERTENSION
  6. AMBIEN [Concomitant]

REACTIONS (7)
  - ABDOMINAL DISCOMFORT [None]
  - COUGH [None]
  - DYSGEUSIA [None]
  - HEADACHE [None]
  - INCORRECT DOSE ADMINISTERED [None]
  - NAUSEA [None]
  - VOMITING [None]
